FAERS Safety Report 5734236 (Version 15)
Quarter: 2014Q2

REPORT INFORMATION
  Report Type: Spontaneous
  Country: US (occurrence: US)
  Receive Date: 20050209
  Receipt Date: 20140613
  Transmission Date: 20141212
  Serious: Yes (Hospitalization, Disabling, Other)
  Sender: FDA-Public Use
  Company Number: US-ROCHE-394804

PATIENT
  Age: 44 Year
  Sex: Male
  Weight: 85.3 kg

DRUGS (2)
  1. ACCUTANE [Suspect]
     Indication: ACNE
     Route: 048
     Dates: start: 1986, end: 1995
  2. AMOXIL [Concomitant]
     Indication: PHARYNGITIS
     Route: 065

REACTIONS (29)
  - Internal injury [Unknown]
  - Inflammatory bowel disease [Unknown]
  - Gastrointestinal disorder [Unknown]
  - Colitis [Unknown]
  - Colitis ulcerative [Unknown]
  - Rectal haemorrhage [Unknown]
  - Intestinal haemorrhage [Unknown]
  - Ileus [Recovered/Resolved]
  - Irritable bowel syndrome [Unknown]
  - Sinus tachycardia [Unknown]
  - Intervertebral disc degeneration [Recovering/Resolving]
  - Meniscus injury [Unknown]
  - Abdominal pain [Unknown]
  - Haematochezia [Unknown]
  - Anal pruritus [Unknown]
  - Dyspnoea [Unknown]
  - Anal fissure [Unknown]
  - Anaemia [Unknown]
  - Dyspepsia [Unknown]
  - Proctalgia [Unknown]
  - Flatulence [Unknown]
  - Emotional distress [Unknown]
  - Emotional distress [Unknown]
  - Chronic obstructive pulmonary disease [Unknown]
  - Exfoliative rash [Unknown]
  - Impetigo [Unknown]
  - Dysphagia [Unknown]
  - Aphthous stomatitis [Unknown]
  - Pharyngitis [Unknown]
